FAERS Safety Report 8649828 (Version 3)
Quarter: 2012Q4

REPORT INFORMATION
  Report Type: 
  Country: FI (occurrence: FI)
  Receive Date: 20120705
  Receipt Date: 20120823
  Transmission Date: 20130627
  Serious: Yes (Hospitalization)
  Sender: FDA-Public Use
  Company Number: FI-ELI_LILLY_AND_COMPANY-FI201206007663

PATIENT
  Age: 66 Year
  Sex: Female

DRUGS (10)
  1. FORSTEO [Suspect]
     Indication: OSTEOPOROSIS
     Dosage: 20 ug, qd
     Route: 058
     Dates: start: 20110621
  2. SPIRIVA [Concomitant]
     Indication: ASTHMA
     Dosage: UNK
  3. CALCIUM+VIT D                      /00944201/ [Concomitant]
     Indication: MEDICAL DIET
     Dosage: UNK
  4. VITAMIN D [Concomitant]
     Indication: MEDICAL DIET
     Dosage: UNK
  5. THYROXIN [Concomitant]
     Indication: HYPOTHYROIDISM
     Dosage: UNK
  6. TRAMADOL [Concomitant]
     Indication: ANALGESIC THERAPY
     Dosage: UNK
  7. PANADOL [Concomitant]
     Indication: ANALGESIC THERAPY
     Dosage: UNK
  8. SERETIDE [Concomitant]
     Indication: ASTHMA
     Dosage: UNK
  9. VITAMIN B12 [Concomitant]
     Indication: MEDICAL DIET
     Dosage: UNK
  10. IRON [Concomitant]
     Indication: MEDICAL DIET
     Dosage: UNK

REACTIONS (3)
  - Ulna fracture [Recovered/Resolved]
  - Radius fracture [Recovered/Resolved]
  - Fall [Not Recovered/Not Resolved]
